FAERS Safety Report 23967450 (Version 1)
Quarter: 2024Q2

REPORT INFORMATION
  Report Type: Spontaneous
  Country: ZA (occurrence: None)
  Receive Date: 20240612
  Receipt Date: 20240612
  Transmission Date: 20240716
  Serious: Yes (Death)
  Sender: FDA-Public Use
  Company Number: 2024A134763

PATIENT
  Age: 55 Year
  Sex: Female

DRUGS (8)
  1. BUDESONIDE\FORMOTEROL [Suspect]
     Active Substance: BUDESONIDE\FORMOTEROL
     Indication: Asthma
     Dosage: 120 DOSE 160/4.5 MCG; UNKNOWN UNKNOWN
     Route: 055
  2. NORFLEX [Concomitant]
     Active Substance: ORPHENADRINE CITRATE
  3. ACC 600 600 MG [Concomitant]
  4. AMITRIPTYLINE [Concomitant]
     Active Substance: AMITRIPTYLINE
     Indication: Depression
  5. LIOTHYRONINE SODIUM [Concomitant]
     Active Substance: LIOTHYRONINE SODIUM
     Indication: Hypothyroidism
  6. VAGIFEM [Concomitant]
     Active Substance: ESTRADIOL
     Indication: Menopause
  7. FLUOXETINE HYDROCHLORIDE [Concomitant]
     Active Substance: FLUOXETINE HYDROCHLORIDE
     Indication: Depression
  8. AVAMYS 120 DOSE 27.5 MCG [Concomitant]
     Indication: Hypersensitivity

REACTIONS (1)
  - Death [Fatal]

NARRATIVE: CASE EVENT DATE: 20240427
